FAERS Safety Report 13827949 (Version 2)
Quarter: 2017Q4

REPORT INFORMATION
  Report Type: Spontaneous
  Country: US (occurrence: US)
  Receive Date: 20170803
  Receipt Date: 20171108
  Transmission Date: 20180320
  Serious: No
  Sender: FDA-Public Use
  Company Number: PHEH2017US023464

PATIENT
  Age: 7 Year
  Sex: Female

DRUGS (2)
  1. MEKINIST [Suspect]
     Active Substance: TRAMETINIB DIMETHYL SULFOXIDE
     Indication: BRAIN NEOPLASM MALIGNANT
     Dosage: 1 MG, SATURDAY AND SUNDAY
     Route: 048
     Dates: start: 20170706
  2. MEKINIST [Suspect]
     Active Substance: TRAMETINIB DIMETHYL SULFOXIDE
     Indication: PITUITARY GONADOTROPIN HYPERFUNCTION
     Dosage: 0.5 MG, MONDAY TO FRIDAY
     Route: 048
     Dates: start: 20170705

REACTIONS (2)
  - Alopecia [Unknown]
  - Rash [Unknown]

NARRATIVE: CASE EVENT DATE: 20171030
